FAERS Safety Report 6279306-X (Version None)
Quarter: 2009Q3

REPORT INFORMATION
  Report Type: 
  Country: None (occurrence: None)
  Receive Date: 20090723
  Receipt Date: 20080922
  Transmission Date: 20100115
  Serious: Yes (Other)
  Sender: FDA-Public Use
  Company Number: US-AMGEN-KDL286716

PATIENT
  Sex: Male
  Weight: 104.4 kg

DRUGS (9)
  1. PROCRIT [Suspect]
     Indication: RENAL FAILURE CHRONIC
     Route: 058
     Dates: start: 20070202
  2. LABETALOL HCL [Concomitant]
     Route: 048
     Dates: start: 20000101
  3. GLYBURIDE [Concomitant]
     Route: 048
     Dates: start: 20000101
  4. ENALAPRIL MALEATE [Concomitant]
     Route: 048
     Dates: start: 20000101
  5. RAPAMUNE [Concomitant]
     Route: 048
     Dates: start: 20030101
  6. HYDROCHLOROTHIAZIDE [Concomitant]
     Route: 048
     Dates: start: 20050101
  7. FUROSEMIDE [Concomitant]
     Route: 048
     Dates: start: 20000101
  8. CELLCEPT [Concomitant]
     Route: 048
     Dates: start: 20030101
  9. ZYRTEC [Concomitant]
     Route: 048
     Dates: start: 20060101

REACTIONS (6)
  - ARTHRALGIA [None]
  - FEELING ABNORMAL [None]
  - HAEMOGLOBIN DECREASED [None]
  - MALAISE [None]
  - SOMNOLENCE [None]
  - THROMBOSIS [None]
